FAERS Safety Report 5129493-1 (Version None)
Quarter: 2006Q4

REPORT INFORMATION
  Report Type: 
  Country: None (occurrence: None)
  Receive Date: 20061012
  Receipt Date: 20060929
  Transmission Date: 20070319
  Serious: Yes (Other)
  Sender: FDA-Public Use
  Company Number: 2006105549

PATIENT
  Age: 74 Year
  Sex: Male

DRUGS (1)
  1. SUTENT [Suspect]
     Indication: METASTATIC RENAL CELL CARCINOMA
     Dosage: 50 MG (50 MG, FREQUENCY:  DAILY INTERVAL:  EVERY DAY), ORAL
     Route: 048
     Dates: start: 20060803, end: 20060823

REACTIONS (3)
  - HAEMOPTYSIS [None]
  - RASH [None]
  - SKIN EXFOLIATION [None]
